FAERS Safety Report 6804155-0 (Version None)
Quarter: 2010Q2

REPORT INFORMATION
  Report Type: 
  Country: None (occurrence: None)
  Receive Date: 20100628
  Receipt Date: 20070227
  Transmission Date: 20101027
  Serious: Yes (Hospitalization, Other)
  Sender: FDA-Public Use
  Company Number: US-PFIZER INC-2006136198

PATIENT
  Sex: Female
  Weight: 92.1 kg

DRUGS (2)
  1. GEODON [Suspect]
     Dates: start: 20030101
  2. METFORMIN HCL [Concomitant]

REACTIONS (2)
  - SYNCOPE [None]
  - WEIGHT INCREASED [None]
